FAERS Safety Report 9883709 (Version 1)
Quarter: 2014Q1

REPORT INFORMATION
  Report Type: Spontaneous
  Country: US (occurrence: US)
  Receive Date: 20140210
  Receipt Date: 20140210
  Transmission Date: 20141002
  Serious: No
  Sender: FDA-Public Use
  Company Number: US-009507513-1402USA003110

PATIENT
  Sex: Male

DRUGS (11)
  1. DULERA [Suspect]
     Indication: ASTHMA
     Dosage: 2 INHALATION, BID
     Route: 055
     Dates: start: 201102
  2. LOVAZA [Concomitant]
  3. TRILIPIX [Concomitant]
  4. CRESTOR [Concomitant]
  5. PROTONIX [Concomitant]
  6. FLUTICASONE [Concomitant]
  7. AVODART [Concomitant]
  8. TERAZOSIN HYDROCHLORIDE [Concomitant]
  9. ASPIRIN [Concomitant]
  10. ALLERTEC [Concomitant]
  11. VITAMIN D (UNSPECIFIED) [Concomitant]

REACTIONS (3)
  - Drug dose omission [Unknown]
  - Product quality issue [Unknown]
  - Incorrect dose administered [Unknown]
